FAERS Safety Report 10832149 (Version 2)
Quarter: 2015Q1

REPORT INFORMATION
  Report Type: Spontaneous
  Country: US (occurrence: US)
  Receive Date: 20150219
  Receipt Date: 20150221
  Transmission Date: 20150721
  Serious: No
  Sender: FDA-Public Use
  Company Number: US-009507513-1502USA007546

PATIENT
  Sex: Male

DRUGS (1)
  1. BELSOMRA [Suspect]
     Active Substance: SUVOREXANT
     Indication: INSOMNIA
     Dosage: 10 MG TABLET 30 MINUTES BEFORE BEDTIME
     Route: 048
     Dates: start: 201502

REACTIONS (2)
  - Wrong technique in drug usage process [Unknown]
  - Nightmare [Unknown]

NARRATIVE: CASE EVENT DATE: 201502
